FAERS Safety Report 14549381 (Version 1)
Quarter: 2018Q1

REPORT INFORMATION
  Report Type: Spontaneous
  Country: US (occurrence: US)
  Receive Date: 20180219
  Receipt Date: 20180219
  Transmission Date: 20180509
  Serious: Yes (Life-Threatening, Hospitalization, Other)
  Sender: FDA-Public Use
  Company Number: US-INVENTIA-000190

PATIENT
  Age: 67 Year
  Sex: Male

DRUGS (6)
  1. LISINOPRIL. [Concomitant]
     Active Substance: LISINOPRIL
  2. GLIPIZIDE. [Concomitant]
     Active Substance: GLIPIZIDE
  3. CARVEDILOL/CARVEDILOL HYDROCHLODRIDE [Concomitant]
  4. LEVOTHYROXINE. [Concomitant]
     Active Substance: LEVOTHYROXINE
  5. METFORMIN [Suspect]
     Active Substance: METFORMIN HYDROCHLORIDE
     Indication: TYPE 2 DIABETES MELLITUS
  6. SIMVASTATIN. [Concomitant]
     Active Substance: SIMVASTATIN

REACTIONS (5)
  - Lactic acidosis [Recovered/Resolved]
  - Shock [Recovered/Resolved]
  - Multiple organ dysfunction syndrome [Recovered/Resolved]
  - Acute kidney injury [Recovered/Resolved]
  - Diarrhoea haemorrhagic [Recovered/Resolved]
